FAERS Safety Report 4622723-1 (Version None)
Quarter: 2005Q1

REPORT INFORMATION
  Report Type: 
  Country: None (occurrence: None)
  Receive Date: 20050328
  Receipt Date: 20050328
  Transmission Date: 20050727
  Serious: Yes (Life-Threatening)
  Sender: FDA-Public Use
  Company Number: None

PATIENT
  Sex: Male
  Weight: 136 kg

DRUGS (7)
  1. CARBOPLATIN [Suspect]
     Dates: start: 20050314, end: 20050317
  2. MELPHALAN [Suspect]
     Dates: start: 20050314, end: 20050317
  3. ETOPOSIDE [Suspect]
     Dates: start: 20050314, end: 20050317
  4. IMIPERIUM [Concomitant]
  5. VANCOMYCIN [Concomitant]
  6. VORICONAZOLE [Concomitant]
  7. IV PENTANIDINE [Concomitant]

REACTIONS (7)
  - CARDIAC FAILURE [None]
  - DIARRHOEA [None]
  - HEPATOMEGALY [None]
  - MUCOSAL INFLAMMATION [None]
  - NEUTROPHIL COUNT DECREASED [None]
  - PNEUMONIA [None]
  - PULMONARY OEDEMA [None]
